FAERS Safety Report 8074925-2 (Version None)
Quarter: 2012Q1

REPORT INFORMATION
  Report Type: 
  Country: None (occurrence: None)
  Receive Date: 20120127
  Receipt Date: 20120121
  Transmission Date: 20120608
  Serious: No
  Sender: FDA-Public Use
  Company Number: US-B.I. PHARMACEUTICALS,INC./RIDGEFIELD-2012-BP-01298BP

PATIENT
  Age: 59 Year
  Sex: Female

DRUGS (5)
  1. ZANTAC 150 [Suspect]
  2. ACETAMINOPHEN [Concomitant]
     Indication: PAIN
  3. ACETAMINOPHEN [Concomitant]
     Indication: HEADACHE
  4. ZANTAC 150 [Suspect]
     Indication: DYSPEPSIA
     Route: 048
     Dates: start: 20120120
  5. PRILOSEC [Concomitant]
     Indication: GASTROOESOPHAGEAL REFLUX DISEASE

REACTIONS (1)
  - NASAL DRYNESS [None]
